FAERS Safety Report 6963628-0 (Version None)
Quarter: 2010Q3

REPORT INFORMATION
  Report Type: 
  Country: None (occurrence: None)
  Receive Date: 20100902
  Receipt Date: 20100819
  Transmission Date: 20110219
  Serious: No
  Sender: FDA-Public Use
  Company Number: US-JNJFOC-20100807089

PATIENT
  Sex: Female
  Weight: 85.28 kg

DRUGS (7)
  1. FENTANYL CITRATE [Suspect]
     Indication: FIBROMYALGIA
     Route: 062
  2. FENTANYL CITRATE [Suspect]
     Indication: MIGRAINE
     Route: 062
  3. TOPAMAX [Concomitant]
     Indication: MIGRAINE PROPHYLAXIS
     Route: 048
  4. ROBAXIN [Concomitant]
     Indication: FIBROMYALGIA
     Route: 048
  5. AMBIEN [Concomitant]
     Indication: SLEEP DISORDER
     Route: 048
  6. VISTARIL [Concomitant]
     Indication: ANXIETY
     Route: 048
  7. KLONOPIN [Concomitant]
     Indication: ANXIETY
     Route: 048

REACTIONS (4)
  - APPLICATION SITE IRRITATION [None]
  - APPLICATION SITE RASH [None]
  - PRODUCT ODOUR ABNORMAL [None]
  - WRONG TECHNIQUE IN DRUG USAGE PROCESS [None]
